FAERS Safety Report 14662394 (Version 1)
Quarter: 2018Q1

REPORT INFORMATION
  Report Type: Spontaneous
  Country: GB (occurrence: GB)
  Receive Date: 20180321
  Receipt Date: 20180321
  Transmission Date: 20180509
  Serious: Yes (Death)
  Sender: FDA-Public Use
  Company Number: GB-ROCHE-2090969

PATIENT
  Age: 78 Year
  Sex: Female

DRUGS (1)
  1. RITUXIMAB. [Suspect]
     Active Substance: RITUXIMAB
     Indication: CHRONIC LYMPHOCYTIC LEUKAEMIA
     Route: 042
     Dates: start: 20170301, end: 20170701

REACTIONS (3)
  - Progressive multifocal leukoencephalopathy [Fatal]
  - Immunosuppression [Fatal]
  - JC virus infection [Fatal]

NARRATIVE: CASE EVENT DATE: 20170801
